FAERS Safety Report 7803479-8 (Version None)
Quarter: 2011Q4

REPORT INFORMATION
  Report Type: 
  Country: None (occurrence: None)
  Receive Date: 20111007
  Receipt Date: 20110928
  Transmission Date: 20120403
  Serious: Yes (Hospitalization, Other)
  Sender: FDA-Public Use
  Company Number: US-ASTRAZENECA-2009UW05893

PATIENT
  Age: 764 Month
  Sex: Female
  Weight: 72.6 kg

DRUGS (33)
  1. DILANTIN [Suspect]
  2. LEVOTHYROXINE SODIUM [Concomitant]
  3. MULTIPLE VITAMIN [Concomitant]
  4. TESSALON [Concomitant]
  5. SEROQUEL [Interacting]
     Indication: BIPOLAR DISORDER
     Route: 048
     Dates: start: 19970101
  6. SEROQUEL [Interacting]
     Route: 048
  7. DILANTIN [Suspect]
     Route: 042
  8. ESTRACE [Concomitant]
  9. PRILOSEC [Suspect]
     Route: 048
  10. UNSPECIFIED MEDICATION [Interacting]
  11. LYRICA [Concomitant]
     Indication: FIBROMYALGIA
     Route: 048
  12. LYRICA [Concomitant]
     Dosage: 15 MGT TID
     Route: 048
  13. ATIVAN [Concomitant]
     Dosage: LORAZEPAM 1 MG  IN THE AFTERNOON, AND THEN 1-2 MG AT NIGHT
  14. CEREFOLIN [Concomitant]
  15. SEROQUEL [Interacting]
     Route: 048
  16. LAMICTAL [Concomitant]
     Route: 048
     Dates: end: 20100801
  17. LAMICTAL [Concomitant]
     Route: 048
     Dates: start: 20100801
  18. CLARITIN [Concomitant]
  19. ATIVAN [Concomitant]
     Dosage: ATIVAN
  20. SYNTHROID [Concomitant]
  21. CITRACEL [Concomitant]
  22. NEXIUM [Suspect]
     Indication: GASTROOESOPHAGEAL REFLUX DISEASE
     Route: 048
  23. SINGULAIR [Concomitant]
  24. OSCAL [Concomitant]
  25. TYLENOL-500 [Concomitant]
  26. NORCO [Concomitant]
  27. IRON [Concomitant]
  28. LASIX [Concomitant]
  29. KEPPRA [Concomitant]
  30. ZYRTEC [Concomitant]
  31. SEROQUEL [Interacting]
     Route: 048
  32. NEXIUM [Suspect]
     Route: 048
  33. IMODIUM [Concomitant]

REACTIONS (19)
  - BALANCE DISORDER [None]
  - HALLUCINATION [None]
  - GRAND MAL CONVULSION [None]
  - NASOPHARYNGITIS [None]
  - PARTIAL SEIZURES [None]
  - TARDIVE DYSKINESIA [None]
  - HYPOMANIA [None]
  - DRUG DOSE OMISSION [None]
  - DRUG INTERACTION [None]
  - TOXICITY TO VARIOUS AGENTS [None]
  - ENCEPHALITIS VIRAL [None]
  - APHAGIA [None]
  - CONFUSIONAL STATE [None]
  - UNRESPONSIVE TO STIMULI [None]
  - MENTAL STATUS CHANGES [None]
  - ENCEPHALOPATHY [None]
  - LOWER LIMB FRACTURE [None]
  - COMMUNICATION DISORDER [None]
  - AMNESIA [None]
